FAERS Safety Report 8173077-8 (Version None)
Quarter: 2012Q1

REPORT INFORMATION
  Report Type: 
  Country: None (occurrence: None)
  Receive Date: 20120229
  Receipt Date: 20120220
  Transmission Date: 20120608
  Serious: Yes (Disabling, Other)
  Sender: FDA-Public Use
  Company Number: FR-VERTEX PHARMACEUTICALS INC.-AE-2011-000504

PATIENT
  Sex: Female
  Weight: 65 kg

DRUGS (9)
  1. ESOMEPRAZOLE MAGNESIUM [Concomitant]
     Indication: GASTROOESOPHAGEAL REFLUX DISEASE
  2. PROPRANOLOL HYDROCHLORIDE [Concomitant]
     Indication: PORTAL HYPERTENSION
  3. PEGASYS [Concomitant]
     Indication: HEPATITIS C
     Dates: start: 20110623
  4. METFORMIN HCL [Concomitant]
     Indication: TYPE 2 DIABETES MELLITUS
     Dates: start: 20090101
  5. VX-950 [Suspect]
     Indication: HEPATITIS C
     Route: 048
     Dates: start: 20110607, end: 20110708
  6. GLICLAZIDE [Concomitant]
     Indication: TYPE 2 DIABETES MELLITUS
     Dates: start: 20090101
  7. GLIMEPIRIDE [Concomitant]
     Indication: TYPE 2 DIABETES MELLITUS
  8. ACETAMINOPHEN [Concomitant]
     Indication: PAIN
  9. COPEGUS [Concomitant]
     Indication: HEPATITIS C
     Dates: start: 20110623

REACTIONS (5)
  - NAUSEA [None]
  - TREATMENT NONCOMPLIANCE [None]
  - VOMITING [None]
  - ASTHENIA [None]
  - ANAEMIA [None]
